FAERS Safety Report 17286951 (Version 2)
Quarter: 2020Q1

REPORT INFORMATION
  Report Type: Report from Study
  Country: None (occurrence: AU)
  Receive Date: 20200120
  Receipt Date: 20200122
  Transmission Date: 20200409
  Serious: Yes (Other)
  Sender: FDA-Public Use
  Company Number: AU-ABBVIE-20K-008-3236111-00

PATIENT
  Sex: Female

DRUGS (4)
  1. HUMIRA [Suspect]
     Active Substance: ADALIMUMAB
     Indication: PSORIASIS
  2. ENSTILAR [Concomitant]
     Active Substance: BETAMETHASONE DIPROPIONATE\CALCIPOTRIENE HYDRATE
     Indication: PRODUCT USED FOR UNKNOWN INDICATION
  3. HUMIRA [Suspect]
     Active Substance: ADALIMUMAB
     Indication: PSORIATIC ARTHROPATHY
     Route: 058
  4. ITRACONAZOLE. [Concomitant]
     Active Substance: ITRACONAZOLE
     Indication: PRODUCT USED FOR UNKNOWN INDICATION
     Dates: start: 2017

REACTIONS (2)
  - Surgical failure [Not Recovered/Not Resolved]
  - Hip arthroplasty [Unknown]
